FAERS Safety Report 6648044-3 (Version None)
Quarter: 2010Q1

REPORT INFORMATION
  Report Type: 
  Country: None (occurrence: None)
  Receive Date: 20100324
  Receipt Date: 20100311
  Transmission Date: 20100710
  Serious: Yes (Hospitalization, Other)
  Sender: FDA-Public Use
  Company Number: PHHY2010US16035

PATIENT
  Sex: Female

DRUGS (7)
  1. RECLAST [Suspect]
     Dosage: UNK
     Dates: start: 20090301
  2. CALTRATE +D [Suspect]
  3. NEXIUM [Concomitant]
  4. METOPROLOL [Concomitant]
  5. CRESTOR [Concomitant]
  6. VITAMIN D3 [Concomitant]
  7. PREDNISONE [Concomitant]

REACTIONS (12)
  - CALCINOSIS [None]
  - CHEST PAIN [None]
  - DRY EYE [None]
  - DYSPNOEA [None]
  - IRRITABLE BOWEL SYNDROME [None]
  - LIGAMENT SPRAIN [None]
  - MALAISE [None]
  - MUSCULOSKELETAL DISCOMFORT [None]
  - MUSCULOSKELETAL PAIN [None]
  - MYALGIA [None]
  - PAIN [None]
  - PAIN IN EXTREMITY [None]
